FAERS Safety Report 17054156 (Version 8)
Quarter: 2020Q4

REPORT INFORMATION
  Report Type: Report from Study
  Country: HU (occurrence: HU)
  Receive Date: 20191120
  Receipt Date: 20201028
  Transmission Date: 20210113
  Serious: No
  Sender: FDA-Public Use
  Company Number: NVSC2019HU040150

PATIENT
  Age: 20 Month
  Sex: Male
  Weight: 9.2 kg

DRUGS (4)
  1. PREDNISOLONE. [Suspect]
     Active Substance: PREDNISOLONE
     Indication: ASPARTATE AMINOTRANSFERASE INCREASED
     Dosage: UNK UNK, QD (1MG/ BODY WEIGHT)
     Route: 048
  2. PREDNISOLONE. [Suspect]
     Active Substance: PREDNISOLONE
     Indication: PRODUCT USED FOR UNKNOWN INDICATION
     Dosage: UNK
     Route: 054
  3. ZOLGENSMA [Suspect]
     Active Substance: ONASEMNOGENE ABEPARVOVEC-XIOI
     Indication: SPINAL MUSCULAR ATROPHY
     Dosage: UNK, ONCE/SINGLE (2 PIECES OF 5.5ML AND 5 PIECES OF 8.3 ML)
     Route: 042
     Dates: start: 20191029
  4. FAMOTIDINE. [Concomitant]
     Active Substance: FAMOTIDINE
     Indication: PROPHYLAXIS AGAINST GASTROINTESTINAL ULCER
     Dosage: UNK, QD (1MG/ BODY WEIGHT)
     Route: 065

REACTIONS (26)
  - Ocular hyperaemia [Unknown]
  - Neutropenia [Unknown]
  - Pyrexia [Recovered/Resolved]
  - Hypotonia [Unknown]
  - Weight increased [Unknown]
  - Vomiting [Recovered/Resolved]
  - Thrombocytopenia [Recovered/Resolved]
  - Pharyngeal inflammation [Unknown]
  - Leukopenia [Unknown]
  - Decreased appetite [Unknown]
  - Alanine aminotransferase increased [Unknown]
  - Rash macular [Recovered/Resolved]
  - Hepatic enzyme increased [Unknown]
  - Retching [Recovered/Resolved]
  - Weight decreased [Recovered/Resolved]
  - Hyperreflexia [Unknown]
  - Crying [Unknown]
  - Platelet count decreased [Recovered/Resolved]
  - Pyrexia [Recovered/Resolved]
  - Decreased appetite [Recovered/Resolved]
  - Upper respiratory tract infection [Unknown]
  - Intentional product use issue [Unknown]
  - Granulocytopenia [Unknown]
  - Blood lactate dehydrogenase increased [Recovering/Resolving]
  - Pyrexia [Unknown]
  - Aspartate aminotransferase increased [Recovered/Resolved]

NARRATIVE: CASE EVENT DATE: 201910
